FAERS Safety Report 25115615 (Version 2)
Quarter: 2025Q1

REPORT INFORMATION
  Report Type: Spontaneous
  Country: CA (occurrence: CA)
  Receive Date: 20250325
  Receipt Date: 20250326
  Transmission Date: 20250409
  Serious: Yes (Death, Other)
  Sender: Haleon PLC
  Company Number: CA-002147023-NVSC2025CA046203

PATIENT
  Sex: Female

DRUGS (145)
  1. DICLOFENAC [Suspect]
     Active Substance: DICLOFENAC
     Indication: Product used for unknown indication
     Route: 065
  2. DICLOFENAC [Suspect]
     Active Substance: DICLOFENAC
     Route: 065
  3. DICLOFENAC [Suspect]
     Active Substance: DICLOFENAC
     Route: 065
  4. DICLOFENAC POTASSIUM [Suspect]
     Active Substance: DICLOFENAC POTASSIUM
     Indication: Product used for unknown indication
     Route: 065
  5. DICLOFENAC POTASSIUM [Suspect]
     Active Substance: DICLOFENAC POTASSIUM
     Route: 065
  6. DICLOFENAC POTASSIUM [Suspect]
     Active Substance: DICLOFENAC POTASSIUM
     Route: 065
  7. MESALAMINE [Suspect]
     Active Substance: MESALAMINE
     Indication: Product used for unknown indication
     Route: 065
  8. MESALAMINE [Suspect]
     Active Substance: MESALAMINE
     Route: 065
  9. THYMOL [Suspect]
     Active Substance: THYMOL
     Indication: Product used for unknown indication
     Route: 048
  10. THYMOL [Suspect]
     Active Substance: THYMOL
     Route: 050
  11. THYMOL [Suspect]
     Active Substance: THYMOL
     Route: 048
  12. METHYLPREDNISOLONE SODIUM SUCCINATE [Suspect]
     Active Substance: METHYLPREDNISOLONE SODIUM SUCCINATE
     Indication: Product used for unknown indication
     Route: 048
  13. PREDNISONE [Suspect]
     Active Substance: PREDNISONE
     Indication: Product used for unknown indication
     Route: 048
  14. PREDNISONE [Suspect]
     Active Substance: PREDNISONE
     Route: 048
  15. PREDNISONE [Suspect]
     Active Substance: PREDNISONE
     Route: 048
  16. PREDNISONE [Suspect]
     Active Substance: PREDNISONE
     Route: 065
  17. PREDNISONE [Suspect]
     Active Substance: PREDNISONE
     Route: 065
  18. PREDNISONE [Suspect]
     Active Substance: PREDNISONE
     Route: 048
  19. PREDNISONE [Suspect]
     Active Substance: PREDNISONE
     Route: 048
  20. DICLOFENAC SODIUM [Suspect]
     Active Substance: DICLOFENAC SODIUM
     Indication: Product used for unknown indication
     Route: 065
  21. DICLOFENAC SODIUM [Suspect]
     Active Substance: DICLOFENAC SODIUM
     Route: 065
  22. DICLOFENAC SODIUM [Suspect]
     Active Substance: DICLOFENAC SODIUM
     Dosage: 50 MG, QD
     Route: 065
  23. DICLOFENAC SODIUM [Suspect]
     Active Substance: DICLOFENAC SODIUM
     Route: 065
  24. DICLOFENAC SODIUM [Suspect]
     Active Substance: DICLOFENAC SODIUM
     Route: 065
  25. DICLOFENAC SODIUM [Suspect]
     Active Substance: DICLOFENAC SODIUM
     Route: 058
  26. DICLOFENAC SODIUM [Suspect]
     Active Substance: DICLOFENAC SODIUM
     Route: 065
  27. DICLOFENAC SODIUM [Suspect]
     Active Substance: DICLOFENAC SODIUM
     Route: 065
  28. DICLOFENAC SODIUM [Suspect]
     Active Substance: DICLOFENAC SODIUM
     Route: 065
  29. DICLOFENAC SODIUM [Suspect]
     Active Substance: DICLOFENAC SODIUM
     Route: 065
  30. DICLOFENAC SODIUM [Suspect]
     Active Substance: DICLOFENAC SODIUM
     Route: 050
  31. DICLOFENAC SODIUM [Suspect]
     Active Substance: DICLOFENAC SODIUM
     Route: 065
  32. TRAMADOL HYDROCHLORIDE [Suspect]
     Active Substance: TRAMADOL HYDROCHLORIDE
     Indication: Product used for unknown indication
     Route: 065
  33. PSEUDOEPHEDRINE HYDROCHLORIDE [Suspect]
     Active Substance: PSEUDOEPHEDRINE HYDROCHLORIDE
     Indication: Product used for unknown indication
     Route: 065
  34. SULFASALAZINE [Suspect]
     Active Substance: SULFASALAZINE
     Indication: Product used for unknown indication
     Route: 058
  35. SULFASALAZINE [Suspect]
     Active Substance: SULFASALAZINE
     Route: 058
  36. SULFASALAZINE [Suspect]
     Active Substance: SULFASALAZINE
     Dosage: 2000 MG, QD
     Route: 048
  37. SULFASALAZINE [Suspect]
     Active Substance: SULFASALAZINE
     Route: 058
  38. SULFASALAZINE [Suspect]
     Active Substance: SULFASALAZINE
     Route: 050
  39. SULFASALAZINE [Suspect]
     Active Substance: SULFASALAZINE
     Route: 058
  40. SULFASALAZINE [Suspect]
     Active Substance: SULFASALAZINE
     Route: 058
  41. SULFASALAZINE [Suspect]
     Active Substance: SULFASALAZINE
     Route: 058
  42. MORPHINE SULFATE [Suspect]
     Active Substance: MORPHINE SULFATE
     Indication: Product used for unknown indication
     Route: 065
  43. MORPHINE SULFATE [Suspect]
     Active Substance: MORPHINE SULFATE
     Route: 065
  44. NITROFURAZONE [Suspect]
     Active Substance: NITROFURAZONE
     Indication: Product used for unknown indication
     Route: 048
  45. NITROFURAZONE [Suspect]
     Active Substance: NITROFURAZONE
     Route: 050
  46. NITROFURAZONE [Suspect]
     Active Substance: NITROFURAZONE
     Route: 048
  47. QUETIAPINE FUMARATE [Suspect]
     Active Substance: QUETIAPINE FUMARATE
     Indication: Product used for unknown indication
     Route: 065
  48. QUETIAPINE FUMARATE [Suspect]
     Active Substance: QUETIAPINE FUMARATE
     Route: 065
  49. VITAMIN D3 [Suspect]
     Active Substance: CHOLECALCIFEROL
     Indication: Product used for unknown indication
     Route: 065
  50. VITAMIN D3 [Suspect]
     Active Substance: CHOLECALCIFEROL
     Route: 058
  51. VITAMIN D3 [Suspect]
     Active Substance: CHOLECALCIFEROL
     Route: 050
  52. VITAMIN D3 [Suspect]
     Active Substance: CHOLECALCIFEROL
     Route: 065
  53. VITAMIN D3 [Suspect]
     Active Substance: CHOLECALCIFEROL
     Route: 050
  54. VITAMIN D3 [Suspect]
     Active Substance: CHOLECALCIFEROL
     Route: 016
  55. TYROTHRICIN [Suspect]
     Active Substance: TYROTHRICIN
     Indication: Product used for unknown indication
     Route: 048
  56. TYROTHRICIN [Suspect]
     Active Substance: TYROTHRICIN
     Route: 050
  57. TYROTHRICIN [Suspect]
     Active Substance: TYROTHRICIN
     Route: 048
  58. ACETAMINOPHEN\CODEINE PHOSPHATE\METHOCARBAMOL [Suspect]
     Active Substance: ACETAMINOPHEN\CODEINE PHOSPHATE\METHOCARBAMOL
     Indication: Product used for unknown indication
     Route: 065
  59. ACETAMINOPHEN\CODEINE PHOSPHATE\METHOCARBAMOL [Suspect]
     Active Substance: ACETAMINOPHEN\CODEINE PHOSPHATE\METHOCARBAMOL
     Route: 065
  60. SALICYLIC ACID [Suspect]
     Active Substance: SALICYLIC ACID
     Indication: Product used for unknown indication
     Route: 065
  61. LYRICA [Suspect]
     Active Substance: PREGABALIN
     Indication: Product used for unknown indication
     Route: 065
  62. LYRICA [Suspect]
     Active Substance: PREGABALIN
     Route: 065
  63. OXYCODONE [Suspect]
     Active Substance: OXYCODONE
     Indication: Product used for unknown indication
     Route: 065
  64. OXYCODONE [Suspect]
     Active Substance: OXYCODONE
     Route: 065
  65. DIETARY SUPPLEMENT\HERBALS [Suspect]
     Active Substance: DIETARY SUPPLEMENT\HERBALS
     Indication: Product used for unknown indication
     Route: 050
  66. DIETARY SUPPLEMENT\HERBALS [Suspect]
     Active Substance: DIETARY SUPPLEMENT\HERBALS
     Route: 048
  67. ORENCIA [Suspect]
     Active Substance: ABATACEPT
     Indication: Product used for unknown indication
     Dosage: 17.88 MG, QD
     Route: 065
  68. ORENCIA [Suspect]
     Active Substance: ABATACEPT
     Route: 058
  69. ORENCIA [Suspect]
     Active Substance: ABATACEPT
     Dosage: 125 MG, QW
     Route: 058
  70. ORENCIA [Suspect]
     Active Substance: ABATACEPT
     Route: 065
  71. ORENCIA [Suspect]
     Active Substance: ABATACEPT
     Route: 058
  72. ORENCIA [Suspect]
     Active Substance: ABATACEPT
     Route: 042
  73. ORENCIA [Suspect]
     Active Substance: ABATACEPT
     Route: 050
  74. ORENCIA [Suspect]
     Active Substance: ABATACEPT
     Route: 065
  75. ORENCIA [Suspect]
     Active Substance: ABATACEPT
     Route: 065
  76. ORENCIA [Suspect]
     Active Substance: ABATACEPT
     Route: 042
  77. ORENCIA [Suspect]
     Active Substance: ABATACEPT
     Route: 058
  78. ORENCIA [Suspect]
     Active Substance: ABATACEPT
     Route: 050
  79. ORENCIA [Suspect]
     Active Substance: ABATACEPT
     Route: 065
  80. ORENCIA [Suspect]
     Active Substance: ABATACEPT
     Dosage: 18 MG, QD
     Route: 065
  81. ORENCIA [Suspect]
     Active Substance: ABATACEPT
     Route: 053
  82. ORENCIA [Suspect]
     Active Substance: ABATACEPT
     Dosage: 17.86 MG, QD
     Route: 042
  83. TOFACITINIB CITRATE [Suspect]
     Active Substance: TOFACITINIB CITRATE
     Indication: Product used for unknown indication
     Dosage: 10 MG, QD
     Route: 065
  84. XELJANZ [Suspect]
     Active Substance: TOFACITINIB CITRATE
     Indication: Product used for unknown indication
     Dosage: 5 MG, QD
     Route: 065
  85. XELJANZ [Suspect]
     Active Substance: TOFACITINIB CITRATE
     Dosage: 10 MG, QD
     Route: 048
  86. OTEZLA [Suspect]
     Active Substance: APREMILAST
     Indication: Product used for unknown indication
     Dosage: 6 MG, QD
     Route: 065
  87. OTEZLA [Suspect]
     Active Substance: APREMILAST
     Dosage: 6 MG, QD
     Route: 065
  88. OTEZLA [Suspect]
     Active Substance: APREMILAST
     Route: 048
  89. OTEZLA [Suspect]
     Active Substance: APREMILAST
     Route: 048
  90. OTEZLA [Suspect]
     Active Substance: APREMILAST
     Route: 065
  91. USTEKINUMAB [Suspect]
     Active Substance: USTEKINUMAB
     Indication: Product used for unknown indication
     Route: 042
  92. TRICLOSAN [Suspect]
     Active Substance: TRICLOSAN
     Indication: Product used for unknown indication
     Route: 065
  93. TRICLOSAN [Suspect]
     Active Substance: TRICLOSAN
     Route: 065
  94. PHTHALYLSULFATHIAZOLE [Suspect]
     Active Substance: PHTHALYLSULFATHIAZOLE
     Indication: Product used for unknown indication
     Dosage: 2000 MG, QD
     Route: 048
  95. PHTHALYLSULFATHIAZOLE [Suspect]
     Active Substance: PHTHALYLSULFATHIAZOLE
     Dosage: 2000 MG, QD
     Route: 048
  96. PHTHALYLSULFATHIAZOLE [Suspect]
     Active Substance: PHTHALYLSULFATHIAZOLE
     Route: 050
  97. PHTHALYLSULFATHIAZOLE [Suspect]
     Active Substance: PHTHALYLSULFATHIAZOLE
     Route: 016
  98. PHTHALYLSULFATHIAZOLE [Suspect]
     Active Substance: PHTHALYLSULFATHIAZOLE
     Route: 048
  99. PHTHALYLSULFATHIAZOLE [Suspect]
     Active Substance: PHTHALYLSULFATHIAZOLE
     Dosage: 1000 MG, QD
     Route: 048
  100. PHTHALYLSULFATHIAZOLE [Suspect]
     Active Substance: PHTHALYLSULFATHIAZOLE
     Dosage: 2000 MG, QD
     Route: 058
  101. PHTHALYLSULFATHIAZOLE [Suspect]
     Active Substance: PHTHALYLSULFATHIAZOLE
     Route: 050
  102. PHTHALYLSULFATHIAZOLE [Suspect]
     Active Substance: PHTHALYLSULFATHIAZOLE
     Dosage: 1000 MG, QD
     Route: 048
  103. METHOTREXATE [Suspect]
     Active Substance: METHOTREXATE
     Indication: Product used for unknown indication
     Route: 013
  104. METHOTREXATE [Suspect]
     Active Substance: METHOTREXATE
     Route: 013
  105. METHOTREXATE [Suspect]
     Active Substance: METHOTREXATE
     Route: 050
  106. METHOTREXATE [Suspect]
     Active Substance: METHOTREXATE
     Route: 048
  107. METHOTREXATE [Suspect]
     Active Substance: METHOTREXATE
     Route: 048
  108. METHOTREXATE [Suspect]
     Active Substance: METHOTREXATE
     Route: 065
  109. METHOTREXATE [Suspect]
     Active Substance: METHOTREXATE
     Route: 048
  110. METHOTREXATE [Suspect]
     Active Substance: METHOTREXATE
     Route: 048
  111. METHOTREXATE [Suspect]
     Active Substance: METHOTREXATE
     Dosage: 25 MG, QD
     Route: 048
  112. METHOTREXATE [Suspect]
     Active Substance: METHOTREXATE
     Route: 058
  113. METHOTREXATE [Suspect]
     Active Substance: METHOTREXATE
     Dosage: 20 MG, QD
     Route: 065
  114. METHOTREXATE [Suspect]
     Active Substance: METHOTREXATE
     Dosage: 15 MG, QD
     Route: 048
  115. METHOTREXATE [Suspect]
     Active Substance: METHOTREXATE
     Route: 048
  116. METHOTREXATE [Suspect]
     Active Substance: METHOTREXATE
     Route: 048
  117. METHOTREXATE [Suspect]
     Active Substance: METHOTREXATE
     Route: 050
  118. METHOTREXATE [Suspect]
     Active Substance: METHOTREXATE
     Route: 016
  119. METHOTREXATE [Suspect]
     Active Substance: METHOTREXATE
     Dosage: 20 MG, QD
     Route: 058
  120. NAPROXEN SODIUM [Suspect]
     Active Substance: NAPROXEN SODIUM
     Indication: Product used for unknown indication
     Dosage: 1000 MG, QD
     Route: 065
  121. NAPROXEN SODIUM [Suspect]
     Active Substance: NAPROXEN SODIUM
     Dosage: 1000 MG, QD
     Route: 065
  122. MYCOPHENOLATE MOFETIL [Suspect]
     Active Substance: MYCOPHENOLATE MOFETIL
     Indication: Product used for unknown indication
     Route: 065
  123. MYCOPHENOLATE MOFETIL [Suspect]
     Active Substance: MYCOPHENOLATE MOFETIL
     Route: 065
  124. TOCILIZUMAB [Suspect]
     Active Substance: TOCILIZUMAB
     Indication: Product used for unknown indication
     Route: 058
  125. TOCILIZUMAB [Suspect]
     Active Substance: TOCILIZUMAB
     Route: 058
  126. TOCILIZUMAB [Suspect]
     Active Substance: TOCILIZUMAB
     Route: 058
  127. TOCILIZUMAB [Suspect]
     Active Substance: TOCILIZUMAB
     Dosage: 752 MG, QW
     Route: 065
  128. TOCILIZUMAB [Suspect]
     Active Substance: TOCILIZUMAB
     Route: 058
  129. TOCILIZUMAB [Suspect]
     Active Substance: TOCILIZUMAB
     Route: 050
  130. TOCILIZUMAB [Suspect]
     Active Substance: TOCILIZUMAB
     Route: 016
  131. TOCILIZUMAB [Suspect]
     Active Substance: TOCILIZUMAB
     Route: 042
  132. TOCILIZUMAB [Suspect]
     Active Substance: TOCILIZUMAB
     Route: 042
  133. TOCILIZUMAB [Suspect]
     Active Substance: TOCILIZUMAB
     Route: 042
  134. TOCILIZUMAB [Suspect]
     Active Substance: TOCILIZUMAB
     Route: 048
  135. TOCILIZUMAB [Suspect]
     Active Substance: TOCILIZUMAB
     Route: 050
  136. TOCILIZUMAB [Suspect]
     Active Substance: TOCILIZUMAB
     Route: 016
  137. TOCILIZUMAB [Suspect]
     Active Substance: TOCILIZUMAB
     Dosage: 2912.0 MG, QW
     Route: 042
  138. TOCILIZUMAB [Suspect]
     Active Substance: TOCILIZUMAB
     Route: 016
  139. AMINOSALICYLATE SODIUM [Suspect]
     Active Substance: AMINOSALICYLATE SODIUM
     Indication: Product used for unknown indication
     Route: 065
  140. AMINOSALICYLATE SODIUM [Suspect]
     Active Substance: AMINOSALICYLATE SODIUM
     Route: 065
  141. PREGABALIN [Suspect]
     Active Substance: PREGABALIN
     Indication: Product used for unknown indication
     Route: 065
  142. TRIAMCINOLONE ACETONIDE [Suspect]
     Active Substance: TRIAMCINOLONE ACETONIDE
     Indication: Product used for unknown indication
     Route: 050
  143. TRIAMCINOLONE ACETONIDE [Suspect]
     Active Substance: TRIAMCINOLONE ACETONIDE
     Route: 014
  144. SULFAMETHOXAZOLE\TRIMETHOPRIM [Suspect]
     Active Substance: SULFAMETHOXAZOLE\TRIMETHOPRIM
     Indication: Product used for unknown indication
     Route: 067
  145. SULFAMETHOXAZOLE\TRIMETHOPRIM [Suspect]
     Active Substance: SULFAMETHOXAZOLE\TRIMETHOPRIM
     Route: 067

REACTIONS (59)
  - Psoriatic arthropathy [Fatal]
  - Rheumatoid factor positive [Fatal]
  - Liver injury [Fatal]
  - Lower limb fracture [Fatal]
  - Upper respiratory tract infection [Fatal]
  - Rheumatoid arthritis [Fatal]
  - Joint dislocation [Fatal]
  - Irritable bowel syndrome [Fatal]
  - Nausea [Fatal]
  - Retinitis [Fatal]
  - Joint swelling [Fatal]
  - Pruritus [Fatal]
  - Prescribed underdose [Fatal]
  - Vomiting [Fatal]
  - Mobility decreased [Fatal]
  - Sinusitis [Fatal]
  - Pericarditis [Fatal]
  - Pain in extremity [Fatal]
  - Weight decreased [Fatal]
  - Lupus-like syndrome [Fatal]
  - Seronegative arthritis [Fatal]
  - Muscular weakness [Fatal]
  - Red blood cell sedimentation rate increased [Fatal]
  - Road traffic accident [Fatal]
  - Psoriasis [Fatal]
  - Pyrexia [Fatal]
  - Nasopharyngitis [Fatal]
  - Oedema peripheral [Fatal]
  - Joint stiffness [Fatal]
  - Liver function test increased [Fatal]
  - Weight increased [Fatal]
  - Type 2 diabetes mellitus [Fatal]
  - Urticaria [Fatal]
  - Peripheral swelling [Fatal]
  - Swollen joint count increased [Fatal]
  - Joint range of motion decreased [Fatal]
  - Laryngitis [Fatal]
  - Pneumonia [Fatal]
  - Systemic lupus erythematosus [Fatal]
  - Rheumatic fever [Fatal]
  - Muscle injury [Fatal]
  - Sciatica [Fatal]
  - Osteoarthritis [Fatal]
  - Tachycardia [Fatal]
  - Musculoskeletal stiffness [Fatal]
  - Wound [Fatal]
  - Pulmonary fibrosis [Fatal]
  - Memory impairment [Fatal]
  - Wheezing [Fatal]
  - Rash [Fatal]
  - Lupus vulgaris [Fatal]
  - Synovitis [Fatal]
  - Oedema [Fatal]
  - Wound infection [Fatal]
  - Pain [Fatal]
  - Osteoporosis [Fatal]
  - Prescribed overdose [Fatal]
  - Pemphigus [Fatal]
  - Visual impairment [Fatal]
